FAERS Safety Report 9241548 (Version 2)
Quarter: 2013Q2

REPORT INFORMATION
  Report Type: Report from Study
  Country: CA (occurrence: CA)
  Receive Date: 20130419
  Receipt Date: 20130614
  Transmission Date: 20140414
  Serious: Yes (Hospitalization, Other)
  Sender: FDA-Public Use
  Company Number: CA-JNJFOC-20130407058

PATIENT
  Age: 19 Year
  Sex: Female
  Weight: 57.3 kg

DRUGS (2)
  1. REMICADE [Suspect]
     Indication: CROHN^S DISEASE
     Dosage: 9 INFUSIONS
     Route: 042
  2. ELAVIL [Concomitant]
     Route: 065

REACTIONS (4)
  - Small intestinal anastomosis [Recovered/Resolved]
  - Procedural site reaction [Not Recovered/Not Resolved]
  - Incision site complication [Not Recovered/Not Resolved]
  - Post procedural complication [Not Recovered/Not Resolved]
